FAERS Safety Report 9192374 (Version 1)
Quarter: 2013Q1

REPORT INFORMATION
  Report Type: Spontaneous
  Country: US (occurrence: None)
  Receive Date: 20120703
  Receipt Date: 20120703
  Transmission Date: 20140127
  Serious: No
  Sender: FDA-Public Use
  Company Number: PHHY2012US040010

PATIENT
  Sex: Male

DRUGS (2)
  1. GILENYA (FTY)CAPSULE,0.5MG [Suspect]
     Indication: MULTIPLE SCLEROSIS
     Route: 048
     Dates: start: 20120424
  2. BACLOFEN (BACLOFEN) [Concomitant]

REACTIONS (3)
  - Memory impairment [None]
  - Diarrhoea [None]
  - Dizziness [None]
